FAERS Safety Report 12625512 (Version 3)
Quarter: 2017Q2

REPORT INFORMATION
  Report Type: Report from Study
  Country: JP (occurrence: JP)
  Receive Date: 20160805
  Receipt Date: 20170629
  Transmission Date: 20170830
  Serious: Yes (Other)
  Sender: FDA-Public Use
  Company Number: JP-VIIV HEALTHCARE LIMITED-JP2015JPN062823

PATIENT
  Age: 5 Decade
  Sex: Male

DRUGS (4)
  1. DOLUTEGRAVIR [Suspect]
     Active Substance: DOLUTEGRAVIR
     Indication: HIV INFECTION
     Dosage: 50 MG, 1D
     Route: 048
     Dates: start: 20140806, end: 20170117
  2. LYRICA [Concomitant]
     Active Substance: PREGABALIN
     Indication: SENSORY DISTURBANCE
     Dosage: 25 MG, BID
     Dates: start: 20140806, end: 20140812
  3. GENVOYA COMBINATION TABLETS [Concomitant]
     Indication: HIV INFECTION
     Dosage: 1 DF, QD
     Dates: start: 20170118
  4. TRUVADA [Suspect]
     Active Substance: EMTRICITABINE\TENOFOVIR DISOPROXIL FUMARATE
     Indication: HIV INFECTION
     Dosage: 1 DF, 1D
     Route: 048
     Dates: start: 20140806, end: 20170117

REACTIONS (2)
  - Renal impairment [Recovering/Resolving]
  - Seasonal allergy [Recovering/Resolving]

NARRATIVE: CASE EVENT DATE: 20140819
